FAERS Safety Report 11120606 (Version 1)
Quarter: 2015Q2

REPORT INFORMATION
  Report Type: Spontaneous
  Country: JP (occurrence: JP)
  Receive Date: 20150519
  Receipt Date: 20150519
  Transmission Date: 20150821
  Serious: Yes (Death, Life-Threatening)
  Sender: FDA-Public Use
  Company Number: PHHY2013JP020975

PATIENT
  Age: 61 Year
  Sex: Male

DRUGS (3)
  1. NEORAL [Suspect]
     Active Substance: CYCLOSPORINE
     Indication: RENAL TRANSPLANT
     Dosage: 80MG,QD
     Route: 048
  2. METHYLPREDNISOLONE. [Suspect]
     Active Substance: METHYLPREDNISOLONE
     Indication: RENAL TRANSPLANT
     Dosage: 2 MG, QD
     Route: 048
  3. METHYLPREDNISOLONE. [Suspect]
     Active Substance: METHYLPREDNISOLONE
     Dosage: 6 MG, DAILY
     Route: 048

REACTIONS (5)
  - Pneumonia [Fatal]
  - Abscess limb [Recovered/Resolved]
  - Nodule [Recovered/Resolved]
  - Tenderness [Recovered/Resolved]
  - Chromoblastomycosis [Recovered/Resolved]
